FAERS Safety Report 21064320 (Version 2)
Quarter: 2022Q3

REPORT INFORMATION
  Report Type: Report from Study
  Country: CN (occurrence: CN)
  Receive Date: 20220711
  Receipt Date: 20220927
  Transmission Date: 20221027
  Serious: Yes (Hospitalization)
  Sender: FDA-Public Use
  Company Number: CN-BAXTER-2022BAX001089

PATIENT
  Age: 29 Year
  Sex: Female
  Weight: 70 kg

DRUGS (12)
  1. CYCLOPHOSPHAMIDE [Suspect]
     Active Substance: CYCLOPHOSPHAMIDE
     Indication: Triple negative breast cancer
     Dosage: 600 MG/M2 (1074 MG), ONCE IN 2 WEEKS
     Route: 042
     Dates: start: 20211118
  2. CYCLOPHOSPHAMIDE [Suspect]
     Active Substance: CYCLOPHOSPHAMIDE
     Dosage: EVERY 2 WK
     Route: 042
     Dates: start: 20211202
  3. ATEZOLIZUMAB [Suspect]
     Active Substance: ATEZOLIZUMAB
     Indication: Triple negative breast cancer
     Dosage: 840 MILLIGRAM, ONCE IN 2 WEEKS
     Route: 041
     Dates: start: 20210722
  4. ATEZOLIZUMAB [Suspect]
     Active Substance: ATEZOLIZUMAB
     Dosage: DATE OF MOST RECENT DOSE 840 MG OF PRIOR TO SAE
     Route: 041
     Dates: start: 20211118
  5. ATEZOLIZUMAB [Suspect]
     Active Substance: ATEZOLIZUMAB
     Dosage: 840 MG,1 IN 2  WEEKS, DATE OF MOST RECENT DOSE 840 MG OF PRIOR TO SAE
     Route: 041
     Dates: start: 20211202
  6. PACLITAXEL [Suspect]
     Active Substance: PACLITAXEL
     Indication: Triple negative breast cancer
     Dosage: 80 MG/M2, ONCE IN A WEEK
     Route: 042
     Dates: start: 20210722
  7. PACLITAXEL [Suspect]
     Active Substance: PACLITAXEL
     Dosage: 140.8 MG, ONCE A WEEK, DATE OF MOST RECENT DOSE OF PACLITAXEL PRIOR TO SAE 11NOV2021
     Route: 042
     Dates: start: 20211111
  8. EPIRUBICIN [Suspect]
     Active Substance: EPIRUBICIN
     Indication: Triple negative breast cancer
     Dosage: 90 MG/M2, (161.1 MG), ONCE IN 2 WEEKS
     Route: 042
     Dates: start: 20211118
  9. EPIRUBICIN [Suspect]
     Active Substance: EPIRUBICIN
     Dosage: 161.1 MG, EVERY 2 WK PRIOR TO SERIOUS ADVERSE EVENT
     Route: 042
     Dates: start: 20211202
  10. FILGRASTIM [Suspect]
     Active Substance: FILGRASTIM
     Indication: Triple negative breast cancer
     Dosage: 6 MILLIGRAM, EVERY 2 WK
     Route: 058
     Dates: start: 20211119, end: 20211119
  11. FILGRASTIM [Suspect]
     Active Substance: FILGRASTIM
     Dosage: 6 MILLIGRAM, EVERY 2 WK
     Route: 058
     Dates: start: 20211203, end: 20211203
  12. FILGRASTIM [Suspect]
     Active Substance: FILGRASTIM
     Dosage: 6 MILLIGRAM, EVERY 2 WK
     Route: 058
     Dates: start: 20211225, end: 20211225

REACTIONS (1)
  - Cystitis noninfective [Recovered/Resolved]

NARRATIVE: CASE EVENT DATE: 20211120
